FAERS Safety Report 6589357-3 (Version None)
Quarter: 2010Q1

REPORT INFORMATION
  Report Type: 
  Country: None (occurrence: None)
  Receive Date: 20100218
  Receipt Date: 20100118
  Transmission Date: 20100710
  Serious: No
  Sender: FDA-Public Use
  Company Number: US-JNJFOC-20100107289

PATIENT
  Sex: Female

DRUGS (8)
  1. INVEGA [Suspect]
     Indication: DEPRESSION
  2. INVEGA [Suspect]
  3. INVEGA [Suspect]
     Indication: BIPOLAR DISORDER
  4. INVEGA [Suspect]
  5. INVEGA [Suspect]
     Indication: SCHIZOPHRENIA
  6. INVEGA [Suspect]
  7. LEXAPRO [Concomitant]
     Indication: DEPRESSION
  8. ATIVAN [Concomitant]
     Indication: ANXIETY
     Dosage: 1-2 MG DAILY

REACTIONS (1)
  - INAPPROPRIATE SCHEDULE OF DRUG ADMINISTRATION [None]
